FAERS Safety Report 23363901 (Version 2)
Quarter: 2024Q1

REPORT INFORMATION
  Report Type: Report from Study
  Country: US (occurrence: US)
  Receive Date: 20240104
  Receipt Date: 20240117
  Transmission Date: 20240410
  Serious: Yes (Hospitalization)
  Sender: FDA-Public Use
  Company Number: US-ABBVIE-5525749

PATIENT
  Sex: Female

DRUGS (1)
  1. VENCLEXTA [Suspect]
     Active Substance: VENETOCLAX
     Indication: Acute myelomonocytic leukaemia
     Dosage: DRUG START DATE 2023
     Route: 048
     Dates: end: 20231214

REACTIONS (6)
  - Paronychia [Recovering/Resolving]
  - Rash [Recovering/Resolving]
  - White blood cell count abnormal [Recovering/Resolving]
  - Pyrexia [Recovering/Resolving]
  - Chills [Recovering/Resolving]
  - Neutrophil count abnormal [Recovering/Resolving]

NARRATIVE: CASE EVENT DATE: 20230101
